FAERS Safety Report 22387679 (Version 2)
Quarter: 2023Q2

REPORT INFORMATION
  Report Type: Report from Study
  Country: US (occurrence: US)
  Receive Date: 20230531
  Receipt Date: 20230629
  Transmission Date: 20230722
  Serious: Yes (Hospitalization)
  Sender: FDA-Public Use
  Company Number: US-ALNYLAM PHARMACEUTICALS, INC.-ALN-2023-002442

PATIENT

DRUGS (2)
  1. OXLUMO [Suspect]
     Active Substance: LUMASIRAN
     Indication: Product used for unknown indication
     Dosage: 94.5 MILLIGRAM, MONTHLY
     Route: 058
  2. OXLUMO [Suspect]
     Active Substance: LUMASIRAN
     Dosage: UNK
     Route: 065
     Dates: start: 20230526

REACTIONS (2)
  - Pyrexia [Recovering/Resolving]
  - Cough [Recovering/Resolving]
